FAERS Safety Report 4903908-3 (Version None)
Quarter: 2006Q1

REPORT INFORMATION
  Report Type: 
  Country: None (occurrence: None)
  Receive Date: 20060208
  Receipt Date: 20050725
  Transmission Date: 20060701
  Serious: Yes (Other)
  Sender: FDA-Public Use
  Company Number: US-GLAXOSMITHKLINE-A0567544A

PATIENT
  Age: 58 Year
  Sex: Male

DRUGS (1)
  1. PAROXETINE HCL [Suspect]
     Indication: PANIC DISORDER
     Dosage: 30MG PER DAY
     Route: 048
     Dates: start: 20050101, end: 20050101

REACTIONS (3)
  - DRUG INEFFECTIVE [None]
  - MALAISE [None]
  - VENTRICULAR TACHYCARDIA [None]
